FAERS Safety Report 14339248 (Version 6)
Quarter: 2018Q3

REPORT INFORMATION
  Report Type: Spontaneous
  Country: FR (occurrence: FR)
  Receive Date: 20171230
  Receipt Date: 20180726
  Transmission Date: 20181010
  Serious: Yes (Other)
  Sender: FDA-Public Use
  Company Number: FR-SUN PHARMACEUTICAL INDUSTRIES LTD-2017RR-158356

PATIENT
  Age: 32 Year
  Sex: Female
  Weight: 78 kg

DRUGS (5)
  1. STELARA [Interacting]
     Active Substance: USTEKINUMAB
     Dosage: 45 MG, 3/WEEK
     Route: 058
     Dates: start: 201702
  2. TRAMADOL. [Suspect]
     Active Substance: TRAMADOL
     Indication: PSORIATIC ARTHROPATHY
     Dosage: DOSAGE FORM: UNSPECIFIED ()
     Route: 048
     Dates: start: 2016
  3. NAPROXENE BAYER 220 MG [Suspect]
     Active Substance: NAPROXEN
     Indication: PSORIATIC ARTHROPATHY
     Dosage: 550 MG, BID
     Route: 048
     Dates: start: 201611
  4. STELARA [Interacting]
     Active Substance: USTEKINUMAB
     Indication: PSORIATIC ARTHROPATHY
     Dosage: 45 MG, 3/WEEK
     Route: 058
     Dates: start: 201607
  5. NAPROXENE BAYER 220 MG [Suspect]
     Active Substance: NAPROXEN
     Indication: PSORIATIC ARTHROPATHY
     Dosage: 1100 MG, UNK
     Route: 048
     Dates: start: 201611

REACTIONS (5)
  - Inappropriate schedule of drug administration [Unknown]
  - Off label use [Unknown]
  - Exposure during pregnancy [Recovered/Resolved with Sequelae]
  - Pregnancy [Recovered/Resolved with Sequelae]
  - Device ineffective [Recovered/Resolved with Sequelae]

NARRATIVE: CASE EVENT DATE: 201607
